FAERS Safety Report 8461669-8 (Version None)
Quarter: 2012Q2

REPORT INFORMATION
  Report Type: 
  Country: None (occurrence: None)
  Receive Date: 20120625
  Receipt Date: 20120618
  Transmission Date: 20120825
  Serious: Yes (Other)
  Sender: FDA-Public Use
  Company Number: US-UCBSA-059953

PATIENT
  Age: 71 Year
  Sex: Female

DRUGS (1)
  1. METADATE CD [Suspect]

REACTIONS (2)
  - TRISMUS [None]
  - GLAUCOMA [None]
